FAERS Safety Report 8190912 (Version 3)
Quarter: 2014Q1

REPORT INFORMATION
  Report Type: Spontaneous
  Country: ES (occurrence: ES)
  Receive Date: 20111020
  Receipt Date: 20140327
  Transmission Date: 20141002
  Serious: Yes (Death)
  Sender: FDA-Public Use
  Company Number: ES-RANBAXY-2011US-49681

PATIENT
  Sex: Male

DRUGS (1)
  1. ONDANSETRON [Suspect]
     Indication: PRODUCT USED FOR UNKNOWN INDICATION
     Dosage: UNK
     Route: 060

REACTIONS (6)
  - Hyperthermia malignant [Fatal]
  - Cardiac arrest [Fatal]
  - Hepatic vein thrombosis [Fatal]
  - Bronchopneumonia [Fatal]
  - Lymphadenopathy [Fatal]
  - Enterovirus infection [Fatal]
